FAERS Safety Report 6597084-1 (Version None)
Quarter: 2010Q1

REPORT INFORMATION
  Report Type: 
  Country: None (occurrence: None)
  Receive Date: 20100223
  Receipt Date: 20100222
  Transmission Date: 20100710
  Serious: Yes (Life-Threatening)
  Sender: FDA-Public Use
  Company Number: D0066560A

PATIENT
  Sex: Male

DRUGS (1)
  1. TOPOTECAN [Suspect]
     Indication: SMALL CELL LUNG CANCER RECURRENT
     Dosage: 1.25MGM2 PER DAY
     Route: 042
     Dates: start: 20100118, end: 20100118

REACTIONS (3)
  - CHILLS [None]
  - DYSPNOEA [None]
  - HYPERSENSITIVITY [None]
